FAERS Safety Report 9832913 (Version 2)
Quarter: 2014Q1

REPORT INFORMATION
  Report Type: Spontaneous
  Country: ES (occurrence: ES)
  Receive Date: 20140121
  Receipt Date: 20140210
  Transmission Date: 20141002
  Serious: Yes (Death, Hospitalization, Other)
  Sender: FDA-Public Use
  Company Number: ES-009507513-1401ESP009052

PATIENT
  Age: 67 Year
  Sex: Male

DRUGS (7)
  1. TRYPTIZOL 10 MG [Suspect]
     Indication: PRODUCT USED FOR UNKNOWN INDICATION
     Dosage: ONE TABLET DAILY
     Route: 048
     Dates: start: 20130108
  2. OMEPRAZOLE [Suspect]
     Indication: PRODUCT USED FOR UNKNOWN INDICATION
     Dosage: 20 MG, TWICE A DAY
     Route: 048
     Dates: start: 20130108
  3. ALPHARADIN [Suspect]
     Indication: PROSTATE CANCER METASTATIC
     Dosage: 1 IN 1 MONTH
     Route: 042
     Dates: start: 20130601
  4. LYRICA [Suspect]
     Indication: PRODUCT USED FOR UNKNOWN INDICATION
     Dosage: ONE CAPSULE TWICE DAILY 50 MG (25 MG, 2 IN 1 DAYS)
     Route: 048
     Dates: start: 20130606
  5. LORAZEPAM [Suspect]
     Indication: PRODUCT USED FOR UNKNOWN INDICATION
     Dosage: 1 MG, 1 IN 1 DAY
     Route: 048
     Dates: start: 20130108
  6. OXYCODONE HYDROCHLORIDE [Suspect]
     Indication: PRODUCT USED FOR UNKNOWN INDICATION
     Dosage: UNK
     Route: 065
     Dates: start: 20131202
  7. NALOXONE (NALOXONE HYDROCHLORIDE) [Suspect]
     Indication: PRODUCT USED FOR UNKNOWN INDICATION
     Dosage: UNK
     Route: 065
     Dates: start: 20131202

REACTIONS (7)
  - Pulmonary embolism [Fatal]
  - Dyspnoea [Fatal]
  - Hypoxia [Fatal]
  - Depressed level of consciousness [Fatal]
  - Sinus tachycardia [Fatal]
  - Syncope [Fatal]
  - Hypotension [Fatal]
